FAERS Safety Report 17590158 (Version 1)
Quarter: 2020Q1

REPORT INFORMATION
  Report Type: Spontaneous
  Country: US (occurrence: US)
  Receive Date: 20200327
  Receipt Date: 20200327
  Transmission Date: 20200409
  Serious: Yes (Other)
  Sender: FDA-Public Use
  Company Number: US-AMRING PHARMACEUTICALS INC.-2020US001744

PATIENT
  Age: 44 Year
  Sex: Female

DRUGS (2)
  1. METHYLPREDNISOLONE. [Concomitant]
     Active Substance: METHYLPREDNISOLONE
     Indication: INFLAMMATORY BOWEL DISEASE
     Dosage: UNK
     Route: 042
  2. MESALAMINE RECTAL [Suspect]
     Active Substance: MESALAMINE
     Indication: INFLAMMATORY BOWEL DISEASE
     Dosage: UNK
     Route: 065

REACTIONS (1)
  - Sinus bradycardia [Recovered/Resolved]
